FAERS Safety Report 18355118 (Version 1)
Quarter: 2020Q4

REPORT INFORMATION
  Report Type: Spontaneous
  Country: US (occurrence: US)
  Receive Date: 20201006
  Receipt Date: 20201006
  Transmission Date: 20210114
  Serious: Yes (Life-Threatening, Hospitalization)
  Sender: FDA-Public Use
  Company Number: None

PATIENT
  Age: 83 Year
  Sex: Male
  Weight: 92 kg

DRUGS (1)
  1. AMIODARONE (AMIODARONE HCL (BARR) 200MG TAB) [Suspect]
     Active Substance: AMIODARONE
     Indication: ATRIAL FIBRILLATION
     Route: 048
     Dates: start: 20200420

REACTIONS (3)
  - Toxicity to various agents [None]
  - Respiratory depression [None]
  - Hypothyroidism [None]

NARRATIVE: CASE EVENT DATE: 20200911
